FAERS Safety Report 8925570 (Version 1)
Quarter: 2012Q4

REPORT INFORMATION
  Report Type: 
  Country: US (occurrence: US)
  Receive Date: 20121126
  Receipt Date: 20121126
  Transmission Date: 20130627
  Serious: Yes (Death, Other)
  Sender: FDA-Public Use
  Company Number: PHHY2012US107676

PATIENT
  Age: 20 Year
  Sex: Female

DRUGS (3)
  1. CICLOSPORIN [Suspect]
     Indication: PROPHYLAXIS AGAINST GRAFT VERSUS HOST DISEASE
     Dosage: 2 mg/kg, Q12H
     Route: 042
  2. GRANULOCYTE COLONY STIMULATING FACTOR [Concomitant]
  3. MYCOPHENOLATE MOFETIL [Concomitant]
     Indication: PROPHYLAXIS AGAINST GRAFT VERSUS HOST DISEASE
     Dosage: 15 mg/kg, BID

REACTIONS (4)
  - Bronchopulmonary aspergillosis [Fatal]
  - Acute graft versus host disease in skin [Unknown]
  - Acute graft versus host disease in liver [Unknown]
  - Acute graft versus host disease in intestine [Unknown]
